FAERS Safety Report 24728366 (Version 1)
Quarter: 2024Q4

REPORT INFORMATION
  Report Type: Spontaneous
  Country: IN (occurrence: IN)
  Receive Date: 20241212
  Receipt Date: 20241212
  Transmission Date: 20250114
  Serious: Yes (Other)
  Sender: PFIZER
  Company Number: IN-PFIZER INC-202101678508

PATIENT
  Age: 33 Year
  Sex: Female

DRUGS (2)
  1. SUTENT [Suspect]
     Active Substance: SUNITINIB MALATE
     Indication: Renal cell carcinoma
     Dosage: 4 DF
     Route: 048
  2. SUTENT [Suspect]
     Active Substance: SUNITINIB MALATE
     Dosage: 50 MG, 1X/DAY
     Route: 048
     Dates: start: 20190805

REACTIONS (18)
  - Nephrolithiasis [Unknown]
  - Dyspepsia [Unknown]
  - Hyperchlorhydria [Unknown]
  - Abdominal pain [Unknown]
  - Decreased appetite [Unknown]
  - Chest pain [Unknown]
  - Haemorrhoids [Unknown]
  - Nausea [Unknown]
  - Mouth ulceration [Unknown]
  - Back pain [Unknown]
  - Pyrexia [Unknown]
  - Skin reaction [Unknown]
  - Haemoglobin decreased [Unknown]
  - Asthenia [Unknown]
  - Haematuria [Unknown]
  - Uterine enlargement [Unknown]
  - Heart rate increased [Unknown]
  - Lethargy [Unknown]

NARRATIVE: CASE EVENT DATE: 20210927
